APPROVED DRUG PRODUCT: POTASSIUM CHLORIDE
Active Ingredient: POTASSIUM CHLORIDE
Strength: 2MEQ/ML
Dosage Form/Route: INJECTABLE;INJECTION
Application: A088286 | Product #001
Applicant: EPIC PHARMA LLC
Approved: Sep 5, 1985 | RLD: No | RS: No | Type: DISCN